FAERS Safety Report 5201359-8 (Version None)
Quarter: 2006Q4

REPORT INFORMATION
  Report Type: 
  Country: None (occurrence: None)
  Receive Date: 20061016
  Receipt Date: 20051024
  Transmission Date: 20070319
  Serious: Yes (Other)
  Sender: FDA-Public Use
  Company Number: 21057

PATIENT
  Age: 41 Year
  Sex: Male
  Weight: 84.369 kg

DRUGS (2)
  1. CYTARABINE [Suspect]
     Indication: LEUKAEMIA
     Dosage: 10MG DAILY SUBCUTANEOUSLY FOR 3
     Dates: start: 20051003
  2. CYTARABINE [Suspect]
     Indication: LEUKAEMIA
     Dosage: 10MG DAILY SUBCUTANEOUSLY FOR 3
     Dates: start: 20051004

REACTIONS (1)
  - INJECTION SITE REACTION [None]
